FAERS Safety Report 14752194 (Version 1)
Quarter: 2018Q2

REPORT INFORMATION
  Report Type: Spontaneous
  Country: US (occurrence: US)
  Receive Date: 20180412
  Receipt Date: 20180412
  Transmission Date: 20180711
  Serious: Yes (Other)
  Sender: FDA-Public Use
  Company Number: US-009507513-1804USA004308

PATIENT
  Age: 72 Year
  Sex: Female
  Weight: 48.07 kg

DRUGS (1)
  1. REMERON [Suspect]
     Active Substance: MIRTAZAPINE
     Indication: DEPRESSION
     Dosage: ONE DAILY. STRENGTH: 30(UNITS NOT PROVIDED)
     Route: 048
     Dates: start: 201711

REACTIONS (3)
  - Muscular weakness [Unknown]
  - Renal impairment [Unknown]
  - Muscle spasms [Unknown]

NARRATIVE: CASE EVENT DATE: 201711
